FAERS Safety Report 13622300 (Version 1)
Quarter: 2017Q2

REPORT INFORMATION
  Report Type: Spontaneous
  Country: US (occurrence: US)
  Receive Date: 20170607
  Receipt Date: 20170607
  Transmission Date: 20170830
  Serious: No
  Sender: FDA-Public Use
  Company Number: US-ROCHE-773703

PATIENT
  Sex: Male
  Weight: 88.5 kg

DRUGS (4)
  1. FUZEON [Suspect]
     Active Substance: ENFUVIRTIDE
     Indication: HIV INFECTION
     Route: 058
  2. ISENTRESS [Concomitant]
     Active Substance: RALTEGRAVIR POTASSIUM
     Route: 065
  3. TRUVADA [Concomitant]
     Active Substance: EMTRICITABINE\TENOFOVIR DISOPROXIL FUMARATE
     Route: 065
  4. REYATAZ [Concomitant]
     Active Substance: ATAZANAVIR SULFATE
     Route: 065

REACTIONS (4)
  - No adverse event [Unknown]
  - Weight increased [Unknown]
  - Medication error [Unknown]
  - Product quality issue [Unknown]
